FAERS Safety Report 5731176-1 (Version None)
Quarter: 2008Q2

REPORT INFORMATION
  Report Type: 
  Country: None (occurrence: None)
  Receive Date: 20080507
  Receipt Date: 20080502
  Transmission Date: 20081010
  Serious: Yes (Other)
  Sender: FDA-Public Use
  Company Number: AU-BOEHRINGER INGELHEIM GMBH, GERMANY-2008-BP-06894RO

PATIENT
  Age: 72 Year
  Sex: Female

DRUGS (1)
  1. LITHIUM CARBONATE [Suspect]

REACTIONS (4)
  - BLOOD CALCIUM INCREASED [None]
  - CONFUSIONAL STATE [None]
  - HYPERPARATHYROIDISM [None]
  - MANIA [None]
